FAERS Safety Report 12606119 (Version 2)
Quarter: 2016Q3

REPORT INFORMATION
  Report Type: Spontaneous
  Country: US (occurrence: US)
  Receive Date: 20160729
  Receipt Date: 20160803
  Transmission Date: 20161109
  Serious: Yes (Other)
  Sender: FDA-Public Use
  Company Number: US-PFIZER INC-2016358815

PATIENT
  Age: 70 Year
  Sex: Female
  Weight: 95.25 kg

DRUGS (8)
  1. TIKOSYN [Suspect]
     Active Substance: DOFETILIDE
     Indication: ATRIAL FIBRILLATION
  2. TIKOSYN [Suspect]
     Active Substance: DOFETILIDE
     Indication: SINUS NODE DYSFUNCTION
     Dosage: TOOK INITIAL DOSE OF TIKOSYN 250 MG
     Dates: start: 20160418
  3. METOPROLOL. [Concomitant]
     Active Substance: METOPROLOL
     Dosage: 25 MG BID BY MOUTH
     Route: 048
  4. POTASSIUM [Concomitant]
     Active Substance: POTASSIUM
     Dosage: 40 MEQ BID BY MOUTH
     Route: 048
  5. XARELTO [Concomitant]
     Active Substance: RIVAROXABAN
     Indication: PACEMAKER SYNDROME
     Dosage: 20 MG BY MOUTH NIGHTLY
     Route: 048
     Dates: start: 20160418
  6. TYLENOL [Concomitant]
     Active Substance: ACETAMINOPHEN
     Indication: HEADACHE
     Dosage: UNK UNK, AS NEEDED
  7. SYNTHROID [Concomitant]
     Active Substance: LEVOTHYROXINE SODIUM
     Indication: THYROID DISORDER
     Dosage: 75 MCG BY MOUTH
     Route: 048
     Dates: start: 1990
  8. LASIX [Concomitant]
     Active Substance: FUROSEMIDE
     Dosage: 20 MG ONCE A DAY BY MOUTH
     Route: 048

REACTIONS (2)
  - Drug ineffective [Recovered/Resolved]
  - Drug ineffective [Recovered/Resolved]

NARRATIVE: CASE EVENT DATE: 20160519
